FAERS Safety Report 17486085 (Version 1)
Quarter: 2020Q1

REPORT INFORMATION
  Report Type: Spontaneous
  Country: US (occurrence: US)
  Receive Date: 20200303
  Receipt Date: 20200303
  Transmission Date: 20200409
  Serious: No
  Sender: FDA-Public Use
  Company Number: US-GLENMARK PHARMACEUTICALS-2019GMK045153

PATIENT

DRUGS (1)
  1. MUPIROCIN OINTMENT USP, 2% [Suspect]
     Active Substance: MUPIROCIN
     Indication: NASAL DISORDER
     Dosage: UNK, INTRANASAL
     Route: 045
     Dates: start: 201904

REACTIONS (5)
  - Incorrect route of product administration [Unknown]
  - Product use in unapproved indication [Unknown]
  - Nasal septum disorder [Not Recovered/Not Resolved]
  - Product container issue [Unknown]
  - Application site injury [Not Recovered/Not Resolved]

NARRATIVE: CASE EVENT DATE: 201904
